FAERS Safety Report 9251295 (Version 1)
Quarter: 2013Q1

REPORT INFORMATION
  Report Type: Spontaneous
  Country: US (occurrence: None)
  Receive Date: 20130305
  Receipt Date: 20130305
  Transmission Date: 20140127
  Serious: Yes (Other)
  Sender: FDA-Public Use
  Company Number: 163-21880-12100486

PATIENT
  Age: 63 Year
  Sex: Male

DRUGS (11)
  1. REVLIMID [Suspect]
     Indication: PLASMA CELL MYELOMA
     Dosage: 25MG, 21 IN 21 D, PO
     Route: 048
     Dates: start: 20120911
  2. ACYCLOVIR (ACICLOVIR) (ACICLOVIR) [Concomitant]
  3. BENADRYL (DIPHENHYDRAMINE) [Concomitant]
  4. CALCITROL (CALCITROL) [Concomitant]
  5. DEXAMETHASONE (DEXAMETHASONE) [Concomitant]
  6. DOXIL (DOXORUBICIN HYDROCHLORIDE) [Concomitant]
  7. GAMMAGARD (IMMUNOGLOBULIN HUMAN NORMAL) [Concomitant]
  8. LORAZEPAM (LORAZEPAM) [Concomitant]
  9. PROCRIT [Concomitant]
  10. SUCRALFATE (SUCRALFATE) UNKNOWN [Concomitant]
  11. ZOMETA (ZOLEDRONIC ACID) [Concomitant]

REACTIONS (2)
  - Ageusia [None]
  - Dizziness [None]
